FAERS Safety Report 7072099-8 (Version None)
Quarter: 2010Q4

REPORT INFORMATION
  Report Type: 
  Country: None (occurrence: None)
  Receive Date: 20101029
  Receipt Date: 20091201
  Transmission Date: 20110411
  Serious: No
  Sender: FDA-Public Use
  Company Number: A0832509A

PATIENT
  Age: 66 Year
  Sex: Female

DRUGS (11)
  1. ADVAIR DISKUS 100/50 [Suspect]
     Indication: ASTHMA
     Dosage: 1PUFF TWICE PER DAY
     Route: 055
     Dates: start: 20070201
  2. SINGULAIR [Concomitant]
  3. NASONEX [Concomitant]
  4. NASALCROM [Concomitant]
  5. XOPENEX [Concomitant]
  6. COZAAR [Concomitant]
  7. VERAPAMIL [Concomitant]
  8. LEVOXYL [Concomitant]
  9. CAPADEX [Concomitant]
  10. NEXIUM [Concomitant]
  11. VITAMINS [Concomitant]

REACTIONS (1)
  - SENSITIVITY OF TEETH [None]
